FAERS Safety Report 11090167 (Version 3)
Quarter: 2015Q2

REPORT INFORMATION
  Report Type: Report from Study
  Country: FR (occurrence: FR)
  Receive Date: 20150505
  Receipt Date: 20150520
  Transmission Date: 20150821
  Serious: Yes (Other)
  Sender: FDA-Public Use
  Company Number: FR-SA-2015SA028233

PATIENT
  Age: 60 Year

DRUGS (1)
  1. CABAZITAXEL [Suspect]
     Active Substance: CABAZITAXEL
     Route: 065

REACTIONS (20)
  - Spinal cord compression [Unknown]
  - Thirst [Unknown]
  - Fatigue [Not Recovered/Not Resolved]
  - Dyspnoea exertional [Unknown]
  - Peripheral sensory neuropathy [Unknown]
  - Nausea [Not Recovered/Not Resolved]
  - Platelet transfusion [Unknown]
  - Alopecia [Not Recovered/Not Resolved]
  - Decreased appetite [Unknown]
  - Back pain [Unknown]
  - Mucosal inflammation [Unknown]
  - Cough [Unknown]
  - Tooth abscess [Unknown]
  - Paraesthesia [Unknown]
  - Constipation [Recovered/Resolved]
  - Diarrhoea [Not Recovered/Not Resolved]
  - Pain in extremity [Unknown]
  - Dry mouth [Unknown]
  - Hot flush [Unknown]
  - Throat irritation [Unknown]

NARRATIVE: CASE EVENT DATE: 20030101
